FAERS Safety Report 24037764 (Version 1)
Quarter: 2024Q3

REPORT INFORMATION
  Report Type: Spontaneous
  Country: US (occurrence: US)
  Receive Date: 20240702
  Receipt Date: 20240702
  Transmission Date: 20241016
  Serious: No
  Sender: RANBAXY
  Company Number: US-SUN PHARMACEUTICAL INDUSTRIES LTD-2020R1-243216

PATIENT
  Age: 40 Year
  Sex: Male

DRUGS (2)
  1. ISOTRETINOIN [Suspect]
     Active Substance: ISOTRETINOIN
     Indication: Skin papilloma
     Dosage: 20 MILLIGRAM, QD
     Route: 065
  2. INVESTIGATIONAL PRODUCT [Concomitant]
     Active Substance: INVESTIGATIONAL PRODUCT
     Indication: Skin papilloma
     Dosage: 0.2 CC EVERY 2 WEEKS
     Route: 065

REACTIONS (3)
  - Xerosis [Unknown]
  - Cheilitis [Unknown]
  - Off label use [Unknown]
